FAERS Safety Report 4382533-X (Version None)
Quarter: 2004Q2

REPORT INFORMATION
  Report Type: 
  Country: None (occurrence: None)
  Receive Date: 20040617
  Receipt Date: 20040607
  Transmission Date: 20050107
  Serious: Yes (Disabling, Other)
  Sender: FDA-Public Use
  Company Number: 2004035136

PATIENT
  Age: 67 Year
  Sex: Female

DRUGS (1)
  1. ZITHROMAX [Suspect]
     Indication: INFECTION
     Dosage: 500 MG (250 MG, 2 IN 1 D) , ORAL
     Route: 048
     Dates: start: 20040426, end: 20040428

REACTIONS (4)
  - DEAFNESS UNILATERAL [None]
  - EUSTACHIAN TUBE DISORDER [None]
  - NASOPHARYNGITIS [None]
  - NIGHT SWEATS [None]
